FAERS Safety Report 13128963 (Version 1)
Quarter: 2017Q1

REPORT INFORMATION
  Report Type: Spontaneous
  Country: US (occurrence: US)
  Receive Date: 20170119
  Receipt Date: 20170119
  Transmission Date: 20170428
  Serious: Yes (Other)
  Sender: FDA-Public Use
  Company Number: US-BAXTER-2017BAX001259

PATIENT
  Age: 13 Year
  Sex: Female

DRUGS (18)
  1. PAZOPANIB [Concomitant]
     Active Substance: PAZOPANIB
     Indication: EWING^S SARCOMA METASTATIC
     Route: 065
  2. ETOPOSIDE. [Suspect]
     Active Substance: ETOPOSIDE
     Indication: EWING^S SARCOMA METASTATIC
     Route: 065
  3. MELPHALAN [Suspect]
     Active Substance: MELPHALAN
     Indication: EWING^S SARCOMA METASTATIC
     Dosage: HIGH DOSE
     Route: 065
  4. TOPOTECAN [Concomitant]
     Active Substance: TOPOTECAN HYDROCHLORIDE
     Indication: EWING^S SARCOMA METASTATIC
     Route: 065
  5. FIGITUMUMAB [Concomitant]
     Active Substance: FIGITUMUMAB
     Indication: NEOPLASM PROPHYLAXIS
     Dosage: 17DOSES (51 WEEKS)
     Route: 042
     Dates: start: 2011
  6. IFEX [Suspect]
     Active Substance: IFOSFAMIDE
     Dosage: DOSE REDUCED
     Route: 065
  7. BUSULPHAN [Suspect]
     Active Substance: BUSULFAN
     Indication: EWING^S SARCOMA METASTATIC
     Dosage: HIGH DOSE
     Route: 065
  8. PAZOPANIB [Concomitant]
     Active Substance: PAZOPANIB
     Indication: EWING^S SARCOMA RECURRENT
  9. THALIDOMIDE [Concomitant]
     Active Substance: THALIDOMIDE
     Indication: EWING^S SARCOMA RECURRENT
  10. IFEX [Suspect]
     Active Substance: IFOSFAMIDE
     Indication: EWING^S SARCOMA METASTATIC
     Route: 065
  11. TOPOTECAN [Concomitant]
     Active Substance: TOPOTECAN HYDROCHLORIDE
     Indication: EWING^S SARCOMA RECURRENT
  12. ETOPOSIDE. [Suspect]
     Active Substance: ETOPOSIDE
     Dosage: DOSE REDUCED
     Route: 065
  13. VINCRISTINE [Suspect]
     Active Substance: VINCRISTINE
     Indication: EWING^S SARCOMA METASTATIC
     Route: 065
  14. IFEX [Suspect]
     Active Substance: IFOSFAMIDE
     Route: 065
  15. VINCRISTINE [Suspect]
     Active Substance: VINCRISTINE
     Route: 065
  16. DOXORUBICIN [Suspect]
     Active Substance: DOXORUBICIN
     Indication: EWING^S SARCOMA METASTATIC
     Route: 065
  17. DACTINOMYCIN [Suspect]
     Active Substance: DACTINOMYCIN
     Indication: EWING^S SARCOMA METASTATIC
     Route: 065
  18. THALIDOMIDE [Concomitant]
     Active Substance: THALIDOMIDE
     Indication: EWING^S SARCOMA METASTATIC
     Route: 065

REACTIONS (5)
  - Infection [Unknown]
  - Thrombocytopenia [Not Recovered/Not Resolved]
  - Exfoliative rash [Unknown]
  - Venoocclusive disease [Unknown]
  - Neutropenia [Not Recovered/Not Resolved]
